FAERS Safety Report 21715976 (Version 1)
Quarter: 2022Q4

REPORT INFORMATION
  Report Type: Spontaneous
  Country: IT (occurrence: IT)
  Receive Date: 20221212
  Receipt Date: 20221212
  Transmission Date: 20230113
  Serious: Yes (Hospitalization, Other)
  Sender: FDA-Public Use
  Company Number: None

PATIENT
  Sex: Female

DRUGS (3)
  1. NORVASC [Suspect]
     Active Substance: AMLODIPINE BESYLATE
     Indication: Product used for unknown indication
     Dosage: REFERRED,NOT SPEC.INTAKE OF 1PACK OF NORVASC 5 MG
     Route: 048
     Dates: start: 20220913, end: 20220913
  2. RAMIPRIL [Suspect]
     Active Substance: RAMIPRIL
     Indication: Product used for unknown indication
     Dosage: REFER,NOT BETTER SPEC.INTEN.INTK OF RAMIPRIL 5 MG
     Route: 048
     Dates: start: 20220913, end: 20220913
  3. BROMAZEPAM [Suspect]
     Active Substance: BROMAZEPAM
     Indication: Product used for unknown indication
     Dosage: REP. VOL. INTK BOTTLE OF BROMAZEPAM,QTY NOT SPEC.
     Route: 048
     Dates: start: 20220913, end: 20220913

REACTIONS (5)
  - Sopor [Not Recovered/Not Resolved]
  - Hypotension [Recovering/Resolving]
  - Somnolence [Not Recovered/Not Resolved]
  - Intentional overdose [Not Recovered/Not Resolved]
  - Drug abuse [Unknown]

NARRATIVE: CASE EVENT DATE: 20220913
